FAERS Safety Report 13599107 (Version 2)
Quarter: 2017Q3

REPORT INFORMATION
  Report Type: Spontaneous
  Country: JP (occurrence: JP)
  Receive Date: 20170531
  Receipt Date: 20170728
  Transmission Date: 20171127
  Serious: Yes (Hospitalization)
  Sender: FDA-Public Use
  Company Number: PHHY2017JP079925

PATIENT
  Age: 75 Year
  Sex: Male

DRUGS (1)
  1. VOTRIENT [Suspect]
     Active Substance: PAZOPANIB HYDROCHLORIDE
     Indication: PAPILLARY RENAL CELL CARCINOMA
     Dosage: 800 MG, QD
     Route: 048

REACTIONS (6)
  - Guillain-Barre syndrome [Recovering/Resolving]
  - Hypoaesthesia [Recovering/Resolving]
  - Walking disability [Recovering/Resolving]
  - Muscular weakness [Recovering/Resolving]
  - Sensory disturbance [Recovering/Resolving]
  - Areflexia [Recovering/Resolving]
